FAERS Safety Report 8846338 (Version 1)
Quarter: 2012Q4

REPORT INFORMATION
  Report Type: 
  Country: US (occurrence: US)
  Receive Date: 20121018
  Receipt Date: 20121018
  Transmission Date: 20130627
  Serious: No
  Sender: FDA-Public Use
  Company Number: US-BIOGENIDEC-2012BI043835

PATIENT
  Sex: Male

DRUGS (1)
  1. TYSABRI [Suspect]
     Indication: MULTIPLE SCLEROSIS
     Route: 042
     Dates: start: 20110204, end: 20120706

REACTIONS (4)
  - Gastric infection [Unknown]
  - Adverse event [Unknown]
  - Multiple sclerosis relapse [Unknown]
  - Drug effect decreased [Unknown]
